FAERS Safety Report 15310498 (Version 1)
Quarter: 2018Q3

REPORT INFORMATION
  Report Type: Spontaneous
  Country: US (occurrence: US)
  Receive Date: 20180823
  Receipt Date: 20180823
  Transmission Date: 20181010
  Serious: No
  Sender: FDA-Public Use
  Company Number: US-APOTEX-2018AP016476

PATIENT
  Sex: Male

DRUGS (1)
  1. FLUTICASONE PROPIONATE NASAL SPRAY USP [Suspect]
     Active Substance: FLUTICASONE PROPIONATE
     Indication: PRODUCT USED FOR UNKNOWN INDICATION
     Dosage: UNK
     Route: 065

REACTIONS (8)
  - Dry throat [Recovered/Resolved]
  - Nasal dryness [Recovered/Resolved]
  - Chest discomfort [Recovered/Resolved]
  - Productive cough [Not Recovered/Not Resolved]
  - Hypoacusis [Recovered/Resolved]
  - Anosmia [Recovered/Resolved]
  - Ocular hyperaemia [Unknown]
  - Ear infection [Not Recovered/Not Resolved]
